FAERS Safety Report 7265378-2 (Version None)
Quarter: 2011Q1

REPORT INFORMATION
  Report Type: 
  Country: None (occurrence: None)
  Receive Date: 20110131
  Receipt Date: 20110120
  Transmission Date: 20110831
  Serious: Yes (Other)
  Sender: FDA-Public Use
  Company Number: US-ROCHE-731943

PATIENT
  Sex: Female
  Weight: 73 kg

DRUGS (4)
  1. BONIVA [Suspect]
     Indication: OSTEOPENIA
     Dosage: DOSE: 150
     Route: 048
     Dates: start: 20080619, end: 20081101
  2. NEURONTIN [Concomitant]
     Route: 048
     Dates: start: 20070101
  3. CETIRIZINE HCL [Concomitant]
     Route: 048
     Dates: start: 20070101
  4. BENICAR [Concomitant]
     Indication: HYPERTENSION
     Route: 048
     Dates: start: 20071220

REACTIONS (2)
  - BARRETT'S OESOPHAGUS [None]
  - ABDOMINAL DISCOMFORT [None]
